FAERS Safety Report 10086667 (Version 1)
Quarter: 2014Q2

REPORT INFORMATION
  Report Type: Spontaneous
  Country: US (occurrence: None)
  Receive Date: 20140417
  Receipt Date: 20140417
  Transmission Date: 20141212
  Serious: Yes (Other)
  Sender: FDA-Public Use
  Company Number: None

PATIENT
  Age: 44 Year
  Sex: Male
  Weight: 112.49 kg

DRUGS (1)
  1. METHADONE HYDROCHLORIDE [Suspect]
     Indication: DRUG DEPENDENCE
     Route: 048
     Dates: start: 20140328, end: 20140401

REACTIONS (1)
  - Rhabdomyolysis [None]
